FAERS Safety Report 13197362 (Version 3)
Quarter: 2017Q1

REPORT INFORMATION
  Report Type: Report from Study
  Country: US (occurrence: US)
  Receive Date: 20170208
  Receipt Date: 20170320
  Transmission Date: 20170428
  Serious: Yes (Hospitalization)
  Sender: FDA-Public Use
  Company Number: US-JNJFOC-20170206660

PATIENT
  Age: 74 Year
  Sex: Female

DRUGS (7)
  1. METOPROLOL. [Concomitant]
     Active Substance: METOPROLOL
     Dosage: 25 MG, QD, 1/2 TABLET/DAY
  2. SIMVASTATIN. [Concomitant]
     Active Substance: SIMVASTATIN
  3. ALLOPURINOL. [Concomitant]
     Active Substance: ALLOPURINOL
  4. LATUDA [Concomitant]
     Active Substance: LURASIDONE HYDROCHLORIDE
  5. OMEPRAZOLE. [Concomitant]
     Active Substance: OMEPRAZOLE
  6. IMBRUVICA [Suspect]
     Active Substance: IBRUTINIB
     Indication: CHRONIC LYMPHOCYTIC LEUKAEMIA
     Route: 048
     Dates: start: 201605
  7. ASA [Concomitant]
     Active Substance: ASPIRIN

REACTIONS (4)
  - Transient ischaemic attack [Not Recovered/Not Resolved]
  - Atrial fibrillation [Not Recovered/Not Resolved]
  - Facial paralysis [Unknown]
  - Lacunar infarction [Unknown]

NARRATIVE: CASE EVENT DATE: 2017
